FAERS Safety Report 24836021 (Version 2)
Quarter: 2025Q1

REPORT INFORMATION
  Report Type: Spontaneous
  Country: DE (occurrence: DE)
  Receive Date: 20250113
  Receipt Date: 20250123
  Transmission Date: 20250409
  Serious: Yes (Life-Threatening, Hospitalization, Other)
  Sender: ALKEM
  Company Number: DE-ALKEM LABORATORIES LIMITED-DE-ALKEM-2024-26937

PATIENT
  Age: 57 Year
  Sex: Female

DRUGS (1)
  1. AMLODIPINE BESYLATE [Suspect]
     Active Substance: AMLODIPINE BESYLATE
     Indication: Product used for unknown indication
     Route: 048

REACTIONS (7)
  - Acute respiratory failure [Recovering/Resolving]
  - Vasoplegia syndrome [Recovering/Resolving]
  - Suicide attempt [Unknown]
  - Toxicity to various agents [Recovered/Resolved]
  - Overdose [Unknown]
  - Drug level increased [Recovering/Resolving]
  - Hypotension [Recovered/Resolved]
